FAERS Safety Report 23394195 (Version 1)
Quarter: 2024Q1

REPORT INFORMATION
  Report Type: Spontaneous
  Country: CA (occurrence: CA)
  Receive Date: 20240111
  Receipt Date: 20240111
  Transmission Date: 20240410
  Serious: Yes (Hospitalization, Other)
  Sender: FDA-Public Use
  Company Number: CA-FreseniusKabi-FK202400227

PATIENT

DRUGS (1)
  1. PROPOFOL [Suspect]
     Active Substance: PROPOFOL
     Indication: Anaesthesia
     Dosage: FORM OF ADMIN: EMULSION?ROUTE OF ADMIN: INTRAVENOUS
     Route: 042

REACTIONS (4)
  - Dizziness [Recovering/Resolving]
  - Product quality issue [Recovering/Resolving]
  - Sepsis [Recovering/Resolving]
  - Somnolence [Recovering/Resolving]
